FAERS Safety Report 4580805-7 (Version None)
Quarter: 2005Q1

REPORT INFORMATION
  Report Type: 
  Country: None (occurrence: None)
  Receive Date: 20050127
  Receipt Date: 20040818
  Transmission Date: 20050727
  Serious: No
  Sender: FDA-Public Use
  Company Number: USA040875982

PATIENT
  Age: 25 Year
  Sex: Male
  Weight: 73 kg

DRUGS (1)
  1. STRATTERA [Suspect]
     Indication: ATTENTION DEFICIT/HYPERACTIVITY DISORDER
     Dosage: 25 MG IN THE EVENING
     Dates: start: 20040701

REACTIONS (5)
  - ABNORMAL BEHAVIOUR [None]
  - ASTHENIA [None]
  - BRADYPHRENIA [None]
  - FLAT AFFECT [None]
  - SOMNOLENCE [None]
